FAERS Safety Report 8234501-5 (Version None)
Quarter: 2012Q1

REPORT INFORMATION
  Report Type: 
  Country: None (occurrence: None)
  Receive Date: 20120326
  Receipt Date: 20120315
  Transmission Date: 20120608
  Serious: No
  Sender: FDA-Public Use
  Company Number: US-ROCHE-1015873

PATIENT
  Sex: Female

DRUGS (3)
  1. VITAMIN [Concomitant]
  2. LUCENTIS [Suspect]
     Indication: VITREOUS FLOATERS
     Route: 050
     Dates: start: 20110506
  3. LUCENTIS [Suspect]
     Indication: VISUAL ACUITY REDUCED

REACTIONS (4)
  - VITREOUS FLOATERS [None]
  - INFLAMMATION [None]
  - FALL [None]
  - VISUAL ACUITY REDUCED [None]
